FAERS Safety Report 14544693 (Version 3)
Quarter: 2018Q2

REPORT INFORMATION
  Report Type: Report from Study
  Country: US (occurrence: US)
  Receive Date: 20180217
  Receipt Date: 20180426
  Transmission Date: 20180711
  Serious: Yes (Hospitalization, Other)
  Sender: FDA-Public Use
  Company Number: US-AMGEN-USASL2018019897

PATIENT
  Age: 74 Year
  Sex: Female
  Weight: 68.93 kg

DRUGS (3)
  1. REPATHA [Suspect]
     Active Substance: EVOLOCUMAB
     Dosage: 140 MG, QMO
     Route: 065
     Dates: start: 201711
  2. REPATHA [Suspect]
     Active Substance: EVOLOCUMAB
     Indication: BLOOD CHOLESTEROL INCREASED
     Dosage: 140 MG, Q2WK
     Route: 065
     Dates: start: 20160811
  3. WELCHOL [Concomitant]
     Active Substance: COLESEVELAM HYDROCHLORIDE
     Indication: PRODUCT USED FOR UNKNOWN INDICATION
     Dosage: UNK
     Route: 065

REACTIONS (11)
  - Gastric disorder [Unknown]
  - Low density lipoprotein decreased [Unknown]
  - Off label use [Unknown]
  - Wrong technique in product usage process [Unknown]
  - Nephrolithiasis [Unknown]
  - Echocardiogram [Unknown]
  - Injection site discolouration [Recovered/Resolved]
  - Dermatitis [Unknown]
  - Underdose [Unknown]
  - Blood cholesterol decreased [Unknown]
  - Nasopharyngitis [Unknown]
